FAERS Safety Report 8994601 (Version 3)
Quarter: 2013Q1

REPORT INFORMATION
  Report Type: Spontaneous
  Country: US (occurrence: US)
  Receive Date: 20130102
  Receipt Date: 20130311
  Transmission Date: 20140127
  Serious: Yes (Hospitalization, Other)
  Sender: FDA-Public Use
  Company Number: US-AMGEN-USASP2012079382

PATIENT
  Sex: Female
  Weight: 64.67 kg

DRUGS (4)
  1. ENBREL [Suspect]
     Indication: RHEUMATOID ARTHRITIS
     Dosage: 50 MG, QWK
     Route: 058
     Dates: start: 20120228, end: 20130101
  2. TOPAMAX [Suspect]
     Indication: PARAESTHESIA
     Dosage: 25 MG, 1-4 DAILY
     Route: 048
     Dates: start: 20121102, end: 20121201
  3. IBUPROFEN [Concomitant]
     Indication: PAIN
     Dosage: 600 MG, BID
     Route: 048
     Dates: start: 201210
  4. PLAQUENIL                          /00072602/ [Concomitant]
     Indication: RHEUMATOID ARTHRITIS
     Dosage: 200 MG, QD
     Route: 048
     Dates: start: 2012

REACTIONS (12)
  - Gait disturbance [Recovered/Resolved]
  - Fall [Recovered/Resolved]
  - Vision blurred [Recovered/Resolved]
  - Hypoaesthesia [Recovered/Resolved]
  - Convulsion [Not Recovered/Not Resolved]
  - Hypoaesthesia oral [Not Recovered/Not Resolved]
  - Laceration [Recovered/Resolved]
  - Cystitis [Recovered/Resolved]
  - Eye pain [Recovered/Resolved]
  - Headache [Recovered/Resolved]
  - Wound infection [Recovered/Resolved]
  - Eye infection bacterial [Recovered/Resolved]
